FAERS Safety Report 8017576-8 (Version None)
Quarter: 2011Q4

REPORT INFORMATION
  Report Type: 
  Country: None (occurrence: None)
  Receive Date: 20111229
  Receipt Date: 20111229
  Transmission Date: 20120403
  Serious: Yes (Hospitalization)
  Sender: FDA-Public Use
  Company Number: None

PATIENT
  Sex: Female
  Weight: 74.3899 kg

DRUGS (6)
  1. LENALIDOMIDE [Suspect]
     Indication: MULTIPLE MYELOMA
     Dosage: 25 MG DAILY 14 OF 28 DAY ORAL
     Route: 048
     Dates: start: 20111115, end: 20111225
  2. REVLIMID [Concomitant]
  3. DEXAMETHASONE [Concomitant]
  4. NEXIUM [Concomitant]
  5. ONDANSETRON HCL (ALSO KNOWN AS ZOFRAN) [Concomitant]
  6. LISINOPRIL (ALSO KNOWN AS ZESTRIL) [Concomitant]

REACTIONS (2)
  - ABDOMINAL PAIN [None]
  - CONSTIPATION [None]
